FAERS Safety Report 4858525-0 (Version None)
Quarter: 2005Q4

REPORT INFORMATION
  Report Type: 
  Country: None (occurrence: None)
  Receive Date: 20051219
  Receipt Date: 20051207
  Transmission Date: 20060501
  Serious: Yes (Hospitalization, Other)
  Sender: FDA-Public Use
  Company Number: US-JNJFOC-20050300647

PATIENT
  Sex: Male
  Weight: 77.11 kg

DRUGS (5)
  1. REMICADE [Suspect]
     Dosage: 4 MG/KG
     Route: 042
  2. REMICADE [Suspect]
     Dosage: 4 MG/KG
     Route: 042
  3. REMICADE [Suspect]
     Indication: RHEUMATOID ARTHRITIS
     Dosage: 4 MG/KG
     Route: 042
  4. PREDNISONE TAB [Concomitant]
  5. ARAVA [Concomitant]
     Dosage: LAST DOSE

REACTIONS (21)
  - AORTIC DILATATION [None]
  - AORTIC VALVE CALCIFICATION [None]
  - ASTHENIA [None]
  - BLADDER CANCER [None]
  - BLOOD GLUCOSE INCREASED [None]
  - DEEP VEIN THROMBOSIS [None]
  - DIVERTICULUM [None]
  - EXERCISE ELECTROCARDIOGRAM ABNORMAL [None]
  - HYPERTENSION [None]
  - MITRAL VALVE CALCIFICATION [None]
  - MITRAL VALVE INCOMPETENCE [None]
  - PANCREATIC ATROPHY [None]
  - PLATELET COUNT INCREASED [None]
  - PLEURAL FIBROSIS [None]
  - PROSTATE EXAMINATION ABNORMAL [None]
  - PULMONARY EMBOLISM [None]
  - QRS AXIS ABNORMAL [None]
  - RENAL CYST [None]
  - TACHYCARDIA [None]
  - TUBERCULOSIS OF CENTRAL NERVOUS SYSTEM [None]
  - VENTRICULAR HYPERTROPHY [None]
